FAERS Safety Report 23245380 (Version 1)
Quarter: 2023Q4

REPORT INFORMATION
  Report Type: Spontaneous
  Country: CN (occurrence: None)
  Receive Date: 20231130
  Receipt Date: 20231130
  Transmission Date: 20240109
  Serious: Yes (Other)
  Sender: FDA-Public Use
  Company Number: 2023A268416

PATIENT
  Age: 27282 Day
  Sex: Male
  Weight: 61.5 kg

DRUGS (3)
  1. DAPAGLIFLOZIN [Suspect]
     Active Substance: DAPAGLIFLOZIN
     Indication: Type 2 diabetes mellitus
     Route: 048
     Dates: start: 20230709
  2. KERENDIA [Suspect]
     Active Substance: FINERENONE
     Indication: Type 2 diabetes mellitus
     Route: 048
     Dates: start: 20230711
  3. KERENDIA [Suspect]
     Active Substance: FINERENONE
     Indication: Diabetic nephropathy
     Route: 048
     Dates: start: 20230711

REACTIONS (1)
  - Renal failure [Unknown]

NARRATIVE: CASE EVENT DATE: 20230713
